FAERS Safety Report 9667453 (Version 1)
Quarter: 2013Q4

REPORT INFORMATION
  Report Type: Spontaneous
  Country: US (occurrence: US)
  Receive Date: 20131101
  Receipt Date: 20131101
  Transmission Date: 20140711
  Serious: Yes (Other)
  Sender: FDA-Public Use
  Company Number: US-ORACLE-2011S1000031

PATIENT
  Sex: Male

DRUGS (7)
  1. KRYSTEXXA INJECTION [Suspect]
     Indication: GOUT
     Route: 042
     Dates: start: 20110310, end: 20110310
  2. KRYSTEXXA INJECTION [Suspect]
     Indication: GOUT
     Route: 042
     Dates: start: 201104, end: 201104
  3. KRYSTEXXA INJECTION [Suspect]
     Indication: GOUT
     Route: 042
     Dates: start: 201104, end: 201104
  4. PREDNISONE [Concomitant]
     Indication: PRODUCT USED FOR UNKNOWN INDICATION
  5. SOLUMEDROL [Concomitant]
     Indication: PROPHYLAXIS
     Dates: start: 201104, end: 201104
  6. ALLEGRA [Concomitant]
     Indication: PROPHYLAXIS
     Dates: start: 201104, end: 201104
  7. ULORIC [Concomitant]
     Indication: BLOOD URIC ACID INCREASED

REACTIONS (1)
  - Infusion related reaction [Recovered/Resolved]
